FAERS Safety Report 19987700 (Version 1)
Quarter: 2021Q4

REPORT INFORMATION
  Report Type: Spontaneous
  Country: US (occurrence: US)
  Receive Date: 20211022
  Receipt Date: 20211022
  Transmission Date: 20220303
  Serious: No
  Sender: FDA-Public Use
  Company Number: US-PFIZER INC-2021772010

PATIENT
  Age: 90 Year
  Sex: Female
  Weight: 74.84 kg

DRUGS (1)
  1. LYRICA [Suspect]
     Active Substance: PREGABALIN
     Indication: Back pain
     Dosage: 25 MG, 3X/DAY

REACTIONS (2)
  - Body height decreased [Unknown]
  - Drug ineffective [Unknown]
